FAERS Safety Report 10306438 (Version 2)
Quarter: 2014Q3

REPORT INFORMATION
  Report Type: Spontaneous
  Country: US (occurrence: US)
  Receive Date: 20140715
  Receipt Date: 20140715
  Transmission Date: 20150326
  Serious: Yes (Hospitalization, Other)
  Sender: FDA-Public Use
  Company Number: US-009507513-2011SP041921

PATIENT
  Sex: Female
  Weight: 76.2 kg

DRUGS (3)
  1. NUVARING [Suspect]
     Active Substance: ETHINYL ESTRADIOL\ETONOGESTREL
     Indication: CONTRACEPTION
     Route: 067
     Dates: start: 200612, end: 201101
  2. TRAZODONE HYDROCHLORIDE. [Concomitant]
     Active Substance: TRAZODONE HYDROCHLORIDE
     Indication: DEPRESSION
     Dosage: 50 MG, QD
     Dates: start: 201012
  3. ZOLOFT [Concomitant]
     Active Substance: SERTRALINE HYDROCHLORIDE
     Indication: DEPRESSION
     Dosage: 100 MG, UNK
     Dates: start: 201012

REACTIONS (13)
  - Major depression [Not Recovered/Not Resolved]
  - Abnormal withdrawal bleeding [Not Recovered/Not Resolved]
  - Pulmonary embolism [Unknown]
  - Incorrect drug administration duration [Unknown]
  - Gastrooesophageal reflux disease [Unknown]
  - Vulvovaginal pruritus [Unknown]
  - Intentional self-injury [Unknown]
  - Cyst [Unknown]
  - Palpitations [Unknown]
  - Anaemia [Unknown]
  - Vaginal discharge [Unknown]
  - Suicide attempt [Recovered/Resolved]
  - Constipation [Unknown]

NARRATIVE: CASE EVENT DATE: 20081007
